FAERS Safety Report 15884630 (Version 1)
Quarter: 2019Q1

REPORT INFORMATION
  Report Type: Spontaneous
  Country: FR (occurrence: FR)
  Receive Date: 20190129
  Receipt Date: 20190129
  Transmission Date: 20190417
  Serious: Yes (Death, Hospitalization)
  Sender: FDA-Public Use
  Company Number: FR-TEVA-2019-FR-1003353

PATIENT
  Age: 74 Year
  Sex: Male
  Weight: 53 kg

DRUGS (13)
  1. PANTOPRAZOLE [Concomitant]
     Active Substance: PANTOPRAZOLE
     Dosage: 40 MILLIGRAM DAILY; THE EVENING
     Route: 048
  2. CACIT VITAMINE D3 [Concomitant]
     Active Substance: CALCIUM CARBONATE\CHOLECALCIFEROL
     Dosage: 1 DOSAGE FORMS DAILY; IN THE MORNING
     Route: 048
  3. HYDROSOL POLYVITAMINE B O N [Concomitant]
     Active Substance: VITAMINS
     Dosage: 25 GTT DAILY; IN THE MORNING
     Route: 048
  4. SMECTA [Concomitant]
     Active Substance: MONTMORILLONITE
     Dosage: IF NECESSARY
     Route: 048
  5. FUROSEMIDE. [Concomitant]
     Active Substance: FUROSEMIDE
     Dosage: 1000 MILLIGRAM DAILY; MORNING AND EVENING
     Route: 048
  6. DAPTOMYCINE [Suspect]
     Active Substance: DAPTOMYCIN
     Indication: STAPHYLOCOCCAL INFECTION
     Dates: start: 20181219, end: 20181224
  7. VANCOMYCINE [Suspect]
     Active Substance: VANCOMYCIN
     Indication: STAPHYLOCOCCAL SEPSIS
     Dates: start: 20181214, end: 20181218
  8. PARACETAMOL [Concomitant]
     Active Substance: ACETAMINOPHEN
     Dosage: IF NECESSARY
     Route: 048
  9. EUROBIOL [Concomitant]
     Dosage: 3 DOSAGE FORMS DAILY;
     Route: 048
  10. CALCIPARINE [Concomitant]
     Active Substance: HEPARIN CALCIUM
     Route: 048
  11. MATRIFEN 12 MICROGRAMMES/HEURE, DISPOSITIF TRANSDERMIQUE [Concomitant]
     Route: 062
  12. AERIUS 5 MG, COMPRIM? PELLICUL? [Concomitant]
     Dosage: 5 MILLIGRAM DAILY; THE MIDI
     Route: 048
  13. HYDROCHLOROTHIAZIDE. [Concomitant]
     Active Substance: HYDROCHLOROTHIAZIDE
     Dosage: 50 MILLIGRAM DAILY; THE MIDI
     Route: 048

REACTIONS (1)
  - Rash maculo-papular [Recovering/Resolving]

NARRATIVE: CASE EVENT DATE: 20181224
